FAERS Safety Report 12384263 (Version 1)
Quarter: 2016Q2

REPORT INFORMATION
  Report Type: Spontaneous
  Country: US (occurrence: None)
  Receive Date: 20160518
  Receipt Date: 20160518
  Transmission Date: 20160815
  Serious: No
  Sender: FDA-Public Use
  Company Number: None

PATIENT
  Age: 68 Year
  Sex: Female

DRUGS (1)
  1. BOTOX [Suspect]
     Active Substance: ONABOTULINUMTOXINA
     Indication: MIGRAINE
     Dosage: 200 UNITS EVERY 3 MONTHS INTRAMUSCULAR
     Route: 030
     Dates: start: 20120911

REACTIONS (4)
  - Dizziness [None]
  - Pyrexia [None]
  - Malaise [None]
  - Disturbance in attention [None]

NARRATIVE: CASE EVENT DATE: 20160513
